FAERS Safety Report 16090568 (Version 2)
Quarter: 2019Q2

REPORT INFORMATION
  Report Type: Spontaneous
  Country: SK (occurrence: SK)
  Receive Date: 20190319
  Receipt Date: 20190401
  Transmission Date: 20190711
  Serious: Yes (Other)
  Sender: FDA-Public Use
  Company Number: SK-SA-2019SA072079

PATIENT
  Age: 72 Year
  Sex: Female
  Weight: 165 kg

DRUGS (9)
  1. CO VALSACOR [Concomitant]
     Dosage: 2 DF, BID
  2. PRALUENT [Suspect]
     Active Substance: ALIROCUMAB
     Indication: HYPERLIPIDAEMIA
     Dosage: 75 MG, QOW
     Route: 058
     Dates: start: 20190204, end: 20190220
  3. TENAXUM [Concomitant]
     Active Substance: RILMENIDINE
  4. ASPIRIN PROTECT [Concomitant]
     Active Substance: ASPIRIN
     Dosage: 100 MG, QD
  5. MOXOGAMMA [Concomitant]
     Active Substance: MOXONIDINE
     Dosage: 0.4 MG, QD
  6. CORYOL [CARVEDILOL] [Concomitant]
  7. TRIMETAZIDIN [Concomitant]
     Active Substance: TRIMETAZIDINE
     Dosage: 20 MG
  8. OPRAZOLE [OMEPRAZOLE] [Concomitant]
     Dosage: 20 MG, QD
  9. CARDILAN [MAGNESIUM ASPARTATE;POTASSIUM ASPARTATE] [Concomitant]

REACTIONS (1)
  - Anaphylactoid reaction [Recovered/Resolved]

NARRATIVE: CASE EVENT DATE: 20190220
